FAERS Safety Report 7993320-5 (Version None)
Quarter: 2011Q4

REPORT INFORMATION
  Report Type: 
  Country: None (occurrence: None)
  Receive Date: 20111219
  Receipt Date: 20111004
  Transmission Date: 20120403
  Serious: No
  Sender: FDA-Public Use
  Company Number: US-ASTRAZENECA-2011SE59471

PATIENT
  Age: 58 Year
  Sex: Female
  Weight: 60.8 kg

DRUGS (1)
  1. CRESTOR [Suspect]
     Indication: BLOOD CHOLESTEROL ABNORMAL
     Dosage: EVERY DAY
     Route: 048

REACTIONS (5)
  - HEADACHE [None]
  - NAUSEA [None]
  - INFLAMMATION [None]
  - PAIN IN EXTREMITY [None]
  - OSTEOPOROSIS [None]
